FAERS Safety Report 4423259-3 (Version None)
Quarter: 2004Q3

REPORT INFORMATION
  Report Type: 
  Country: None (occurrence: None)
  Receive Date: 20040810
  Receipt Date: 20040810
  Transmission Date: 20050211
  Serious: No
  Sender: FDA-Public Use
  Company Number: None

PATIENT
  Age: 37 Year
  Sex: Female

DRUGS (3)
  1. PREVACID [Suspect]
     Dosage: 30 MG QAM ORAL
     Route: 048
     Dates: start: 20040415, end: 20040415
  2. CLEOCIN HCL [Concomitant]
  3. ACETAMONOPHEN [Concomitant]

REACTIONS (2)
  - DYSPNOEA [None]
  - NAUSEA [None]
